FAERS Safety Report 21999691 (Version 2)
Quarter: 2023Q2

REPORT INFORMATION
  Report Type: Spontaneous
  Country: SE (occurrence: SE)
  Receive Date: 20230216
  Receipt Date: 20230418
  Transmission Date: 20230721
  Serious: Yes (Hospitalization, Disabling, Other)
  Sender: FDA-Public Use
  Company Number: SE-002147023-NVSC2022SE290975

PATIENT
  Age: 67 Year
  Sex: Male
  Weight: 100 kg

DRUGS (4)
  1. CETIRIZINE [Suspect]
     Active Substance: CETIRIZINE HYDROCHLORIDE
     Indication: Pruritus
     Dosage: UNK
     Route: 065
  2. XOLAIR [Suspect]
     Active Substance: OMALIZUMAB
     Indication: Urticaria
     Dosage: UNK
     Route: 065
     Dates: start: 20220802, end: 20221002
  3. XOLAIR [Suspect]
     Active Substance: OMALIZUMAB
     Indication: Pruritus
     Dosage: 300 MG (EVERY 4 WEEKS)
     Route: 058
     Dates: start: 20220825, end: 20221026
  4. ELOCON [Concomitant]
     Active Substance: MOMETASONE FUROATE
     Indication: Pruritus
     Dosage: UNK
     Route: 065

REACTIONS (10)
  - Blindness unilateral [Recovered/Resolved with Sequelae]
  - Vascular rupture [Unknown]
  - Cerebrovascular accident [Unknown]
  - Haemorrhage [Unknown]
  - Eye contusion [Unknown]
  - Retinal artery occlusion [Unknown]
  - Eye haemorrhage [Unknown]
  - Contusion [Unknown]
  - Visual impairment [Recovered/Resolved with Sequelae]
  - Stress [Unknown]

NARRATIVE: CASE EVENT DATE: 20221026
